FAERS Safety Report 6272012-7 (Version None)
Quarter: 2009Q3

REPORT INFORMATION
  Report Type: 
  Country: None (occurrence: None)
  Receive Date: 20090717
  Receipt Date: 20090708
  Transmission Date: 20100115
  Serious: Yes (Hospitalization)
  Sender: FDA-Public Use
  Company Number: DE-WYE-G04010709

PATIENT
  Age: 61 Year
  Sex: Male
  Weight: 90 kg

DRUGS (2)
  1. VENLAFAXINE HCL [Suspect]
     Dosage: DAILY DOSE REGIMEN UNKNOWN; OVERDOSE AMOUNT UNKNOWN IN JUL-2009.
     Route: 048
  2. LITHIUM [Suspect]
     Dosage: DAILY DOSE REGIMEN UNKNOWN; OVERDOSE AMOUNT UNKNOWN IN JUL-2009.
     Route: 048

REACTIONS (3)
  - ELECTROCARDIOGRAM QRS COMPLEX PROLONGED [None]
  - OVERDOSE [None]
  - TREMOR [None]
